FAERS Safety Report 12086053 (Version 4)
Quarter: 2016Q1

REPORT INFORMATION
  Report Type: Spontaneous
  Country: JP (occurrence: JP)
  Receive Date: 20160217
  Receipt Date: 20160330
  Transmission Date: 20160526
  Serious: Yes (Other)
  Sender: FDA-Public Use
  Company Number: JP-BAXTER-2016BAX007522

PATIENT
  Age: 15 Year
  Sex: Male
  Weight: 60.1 kg

DRUGS (19)
  1. EXITOP KONSENTRAT TIL INFUSJONSV?SKE 20 MG/ML [Suspect]
     Active Substance: ETOPOSIDE
     Indication: RHABDOMYOSARCOMA
     Dosage: 160 MG/BODY
     Route: 042
  2. WARFARIN [Suspect]
     Active Substance: WARFARIN
     Dosage: SECOND COURSE OF IETHERAPY
     Route: 048
  3. DEXAMETHASONE. [Concomitant]
     Active Substance: DEXAMETHASONE
     Indication: SUPPORTIVE CARE
     Route: 042
  4. FAMOTIDINE. [Concomitant]
     Active Substance: FAMOTIDINE
     Indication: SUPPORTIVE CARE
     Route: 042
  5. ONCOVIN [Suspect]
     Active Substance: VINCRISTINE SULFATE
     Indication: RHABDOMYOSARCOMA
     Dosage: 2 MG/BODY
     Route: 042
  6. FLUCONAZOLE. [Concomitant]
     Active Substance: FLUCONAZOLE
     Indication: PARASITIC INFECTION PROPHYLAXIS
     Route: 048
  7. MENATETRENONE [Concomitant]
     Active Substance: MENATETRENONE
     Indication: PRODUCT USED FOR UNKNOWN INDICATION
     Route: 042
  8. WARFARIN [Suspect]
     Active Substance: WARFARIN
     Dosage: SECOND COURSE OF VDC THERAPY
     Route: 048
  9. MESNA. [Concomitant]
     Active Substance: MESNA
     Indication: PROPHYLAXIS
     Route: 042
  10. MESNA. [Concomitant]
     Active Substance: MESNA
     Route: 042
  11. HEPARIN [Concomitant]
     Active Substance: HEPARIN SODIUM
     Indication: PRODUCT USED FOR UNKNOWN INDICATION
     Route: 041
  12. IFOSFAMIDE FOR INJECTION [Suspect]
     Active Substance: IFOSFAMIDE
     Indication: RHABDOMYOSARCOMA
     Dosage: 2900 MG/BODY
     Route: 042
  13. DOXORUBICIN [Suspect]
     Active Substance: DOXORUBICIN
     Indication: RHABDOMYOSARCOMA
     Dosage: 60 MG/BODY
     Route: 042
  14. ONDANSETRON [Concomitant]
     Active Substance: ONDANSETRON
     Indication: SUPPORTIVE CARE
     Route: 042
  15. APREPITANT. [Concomitant]
     Active Substance: APREPITANT
     Route: 065
  16. ENDOXAN LYOPHILISAT [Suspect]
     Active Substance: CYCLOPHOSPHAMIDE
     Indication: RHABDOMYOSARCOMA
     Dosage: 1900 MG/BODY
     Route: 042
  17. WARFARIN [Suspect]
     Active Substance: WARFARIN
     Indication: ANTICOAGULANT THERAPY
     Dosage: DURING FIRST COURSE OF VDC THERAPY
     Route: 048
  18. WARFARIN [Suspect]
     Active Substance: WARFARIN
     Dosage: DURING FIRST COURSE OF IE THERAPY
     Route: 048
  19. APREPITANT. [Concomitant]
     Active Substance: APREPITANT
     Indication: PROPHYLAXIS OF NAUSEA AND VOMITING
     Route: 065

REACTIONS (6)
  - Cerebral artery occlusion [Unknown]
  - International normalised ratio increased [Recovered/Resolved]
  - Depressed level of consciousness [Unknown]
  - Cytopenia [Unknown]
  - Drug interaction [Recovered/Resolved]
  - Seizure [Unknown]
